FAERS Safety Report 6501004-5 (Version None)
Quarter: 2009Q4

REPORT INFORMATION
  Report Type: 
  Country: None (occurrence: None)
  Receive Date: 20091216
  Receipt Date: 20090522
  Transmission Date: 20100525
  Serious: No
  Sender: FDA-Public Use
  Company Number: A0785996A

PATIENT
  Sex: Male

DRUGS (6)
  1. COMMIT [Suspect]
  2. ASACOL [Concomitant]
  3. HUMIRA [Concomitant]
  4. METHOTREXATE [Concomitant]
  5. NEURONTIN [Concomitant]
  6. PREDNISONE [Concomitant]

REACTIONS (1)
  - INTENTIONAL DRUG MISUSE [None]
